FAERS Safety Report 12336579 (Version 1)
Quarter: 2016Q2

REPORT INFORMATION
  Report Type: Spontaneous
  Country: US (occurrence: None)
  Receive Date: 20160504
  Receipt Date: 20160504
  Transmission Date: 20160815
  Serious: Yes (Life-Threatening, Other)
  Sender: FDA-Public Use
  Company Number: None

PATIENT
  Age: 58 Year

DRUGS (5)
  1. PROPRANANOL [Concomitant]
     Active Substance: PROPRANOLOL HYDROCHLORIDE
  2. BACLOFEN. [Concomitant]
     Active Substance: BACLOFEN
  3. MORPHINE [Concomitant]
     Active Substance: MORPHINE
  4. HARVONI [Concomitant]
     Active Substance: LEDIPASVIR\SOFOSBUVIR
  5. LYRICA [Suspect]
     Active Substance: PREGABALIN

REACTIONS (22)
  - Angle closure glaucoma [None]
  - Tinnitus [None]
  - Insomnia [None]
  - Eye pain [None]
  - Visual impairment [None]
  - Agoraphobia [None]
  - Hallucination [None]
  - Weight increased [None]
  - Lethargy [None]
  - Dry eye [None]
  - Dermatitis [None]
  - Photosensitivity reaction [None]
  - Nasal congestion [None]
  - Drug withdrawal syndrome [None]
  - Drug dependence [None]
  - Palpitations [None]
  - Panic attack [None]
  - Paranoia [None]
  - Feeling abnormal [None]
  - Muscle contractions involuntary [None]
  - Dizziness [None]
  - Fear [None]

NARRATIVE: CASE EVENT DATE: 20160401
